FAERS Safety Report 7318757-9 (Version None)
Quarter: 2011Q1

REPORT INFORMATION
  Report Type: 
  Country: None (occurrence: None)
  Receive Date: 20110228
  Receipt Date: 20100309
  Transmission Date: 20110831
  Serious: No
  Sender: FDA-Public Use
  Company Number: A0850721A

PATIENT
  Age: 46 Year
  Sex: Male

DRUGS (7)
  1. IMITREX [Suspect]
     Route: 045
  2. IMITREX [Suspect]
     Route: 048
  3. THYROID MEDICATION [Concomitant]
     Route: 048
  4. EXCEDRIN (MIGRAINE) [Suspect]
     Indication: MIGRAINE
     Route: 048
  5. IMITREX [Suspect]
     Indication: MIGRAINE
     Dosage: 6MG AS REQUIRED
     Route: 058
  6. IMITREX [Suspect]
     Dosage: 4MG AS REQUIRED
     Route: 058
  7. NORTRIPTYLINE [Concomitant]

REACTIONS (8)
  - DRUG INEFFECTIVE [None]
  - QUALITY OF LIFE DECREASED [None]
  - WEIGHT INCREASED [None]
  - THERAPEUTIC RESPONSE DECREASED [None]
  - BLOOD PRESSURE INCREASED [None]
  - WRONG TECHNIQUE IN DRUG USAGE PROCESS [None]
  - OVERDOSE [None]
  - BEDRIDDEN [None]
